FAERS Safety Report 21133955 (Version 1)
Quarter: 2022Q3

REPORT INFORMATION
  Report Type: Spontaneous
  Country: US (occurrence: US)
  Receive Date: 20220726
  Receipt Date: 20220726
  Transmission Date: 20221027
  Serious: No
  Sender: FDA-Public Use
  Company Number: US-OYSTER POINT PHARMA, INC.-2022OYS00435

PATIENT
  Sex: Female
  Weight: 108.86 kg

DRUGS (12)
  1. TYRVAYA [Suspect]
     Active Substance: VARENICLINE TARTRATE
     Indication: Dry eye
     Dosage: UNK UNK, 1X/DAY
     Route: 045
     Dates: start: 202204
  2. UNSPECIFIED INGREDIENT [Suspect]
     Active Substance: UNSPECIFIED INGREDIENT
     Indication: Blood disorder
     Dosage: UNK
  3. RESTASIS [Concomitant]
     Active Substance: CYCLOSPORINE
  4. FUROSEMIDE [Concomitant]
     Active Substance: FUROSEMIDE
  5. NORTRIPTYLINE [Concomitant]
     Active Substance: NORTRIPTYLINE
  6. KLONOPIN [Concomitant]
     Active Substance: CLONAZEPAM
  7. CLARITIN [Concomitant]
     Active Substance: LORATADINE
  8. PREDNISONE [Concomitant]
     Active Substance: PREDNISONE
  9. ENBREL [Concomitant]
     Active Substance: ETANERCEPT
  10. PERCOCET [Concomitant]
     Active Substance: ACETAMINOPHEN\OXYCODONE HYDROCHLORIDE
  11. FLONASE [Concomitant]
     Active Substance: FLUTICASONE PROPIONATE
     Dosage: UNK, AS NEEDED
  12. UNSPECIFIED STEROID NASAL WASH WITH SALINE [Concomitant]
     Dosage: UNK, 1X/DAY
     Route: 045

REACTIONS (7)
  - Epistaxis [Recovered/Resolved]
  - Thrombosis [Recovered/Resolved]
  - Nasal inflammation [Unknown]
  - Nasal congestion [Unknown]
  - Throat irritation [Not Recovered/Not Resolved]
  - Nasal discomfort [Not Recovered/Not Resolved]
  - Off label use [Not Recovered/Not Resolved]

NARRATIVE: CASE EVENT DATE: 20220101
